FAERS Safety Report 23310319 (Version 1)
Quarter: 2023Q4

REPORT INFORMATION
  Report Type: Spontaneous
  Country: US (occurrence: US)
  Receive Date: 20231218
  Receipt Date: 20231218
  Transmission Date: 20240110
  Serious: No
  Sender: FDA-Public Use
  Company Number: US-PFIZER INC-PV202300198856

PATIENT
  Age: 35 Year
  Sex: Female

DRUGS (1)
  1. ZAVZPRET [Suspect]
     Active Substance: ZAVEGEPANT HYDROCHLORIDE
     Indication: Migraine
     Dosage: 1 SPRAY IN 1 NOSTRIL AS NEEDED (MAX 1 SPRAY PER 24 HOURS)
     Route: 045

REACTIONS (2)
  - Nausea [Unknown]
  - Dysgeusia [Recovered/Resolved]
